FAERS Safety Report 4736183-3 (Version None)
Quarter: 2005Q3

REPORT INFORMATION
  Report Type: 
  Country: None (occurrence: None)
  Receive Date: 20050806
  Receipt Date: 20050603
  Transmission Date: 20060218
  Serious: Yes (Other)
  Sender: FDA-Public Use
  Company Number: PHBS2005JP08061

PATIENT
  Age: 41 Year
  Sex: Female
  Weight: 55 kg

DRUGS (2)
  1. DIOVAN [Suspect]
     Dosage: 40 MG/DAY
     Route: 048
  2. AMLODIN [Suspect]
     Indication: HYPERTENSION
     Dosage: 5 MG/DAY
     Route: 048

REACTIONS (2)
  - HYPOTENSION [None]
  - THERAPEUTIC RESPONSE UNEXPECTED [None]
